FAERS Safety Report 7864797 (Version 3)
Quarter: 2012Q4

REPORT INFORMATION
  Report Type: Report from Study
  Country: US (occurrence: US)
  Receive Date: 20110321
  Receipt Date: 20121003
  Transmission Date: 20130627
  Serious: Yes (Hospitalization, Other)
  Sender: FDA-Public Use
  Company Number: US-JNJFOC-20110202101

PATIENT
  Age: 11 Year
  Sex: Female
  Weight: 29.8 kg

DRUGS (7)
  1. REMICADE [Suspect]
     Indication: CROHN^S DISEASE
     Route: 042
     Dates: start: 20101227
  2. REMICADE [Suspect]
     Indication: CROHN^S DISEASE
     Route: 042
     Dates: start: 20101025
  3. REMICADE [Suspect]
     Indication: CROHN^S DISEASE
     Route: 042
     Dates: start: 20100913
  4. 5-ASA [Concomitant]
  5. PREDNISONE [Concomitant]
  6. MULTIVITAMINS WITH IRON [Concomitant]
  7. PROTOPIC [Concomitant]

REACTIONS (2)
  - Ileal stenosis [Recovered/Resolved]
  - Hydronephrosis [Recovered/Resolved]
